FAERS Safety Report 21266421 (Version 1)
Quarter: 2022Q3

REPORT INFORMATION
  Report Type: Report from Study
  Country: US (occurrence: US)
  Receive Date: 20220829
  Receipt Date: 20220829
  Transmission Date: 20221027
  Serious: Yes (Hospitalization)
  Sender: FDA-Public Use
  Company Number: US-ABBVIE-22K-163-4519249-00

PATIENT
  Age: 51 Year
  Sex: Female

DRUGS (1)
  1. SKYRIZI [Suspect]
     Active Substance: RISANKIZUMAB-RZAA
     Indication: Product used for unknown indication
     Dosage: DAY 30 THEN EVERY 12 WEEKS
     Route: 058

REACTIONS (2)
  - Nephrolithiasis [Unknown]
  - Somnolence [Unknown]

NARRATIVE: CASE EVENT DATE: 20220801
